FAERS Safety Report 6914986-4 (Version None)
Quarter: 2010Q3

REPORT INFORMATION
  Report Type: 
  Country: None (occurrence: None)
  Receive Date: 20100809
  Receipt Date: 20100804
  Transmission Date: 20110219
  Serious: Yes (Hospitalization)
  Sender: FDA-Public Use
  Company Number: CHPA2010US12569

PATIENT
  Age: 73 Year
  Sex: Female
  Weight: 45.805 kg

DRUGS (1)
  1. PRIVATE LABEL (NCH) [Suspect]
     Indication: SMOKING CESSATION THERAPY
     Dosage: 14 MG, QD
     Route: 062
     Dates: start: 20100704, end: 20100717

REACTIONS (4)
  - CONCOMITANT DISEASE AGGRAVATED [None]
  - OVERDOSE [None]
  - RENAL DISORDER [None]
  - TREATMENT NONCOMPLIANCE [None]
